FAERS Safety Report 9487036 (Version 1)
Quarter: 2013Q3

REPORT INFORMATION
  Report Type: Spontaneous
  Country: GB (occurrence: GB)
  Receive Date: 20130829
  Receipt Date: 20130829
  Transmission Date: 20140515
  Serious: Yes (Other)
  Sender: FDA-Public Use
  Company Number: PHHY2013GB091466

PATIENT
  Age: 48 Year
  Sex: Female

DRUGS (4)
  1. METHOTREXATE [Suspect]
     Dosage: 15 MG
  2. FOLIC ACID [Suspect]
     Dosage: UNK
  3. DICLOFENAC [Suspect]
     Dosage: UNK
  4. MABTHERA [Suspect]
     Dosage: UNK

REACTIONS (2)
  - Jaw fracture [Unknown]
  - Grand mal convulsion [Unknown]
